FAERS Safety Report 12117656 (Version 1)
Quarter: 2016Q1

REPORT INFORMATION
  Report Type: Spontaneous
  Country: US (occurrence: US)
  Receive Date: 20160226
  Receipt Date: 20160226
  Transmission Date: 20160526
  Serious: Yes (Other)
  Sender: FDA-Public Use
  Company Number: US-JNJCP-30000324551

PATIENT
  Sex: Female
  Weight: 90 kg

DRUGS (8)
  1. NEUTROGENA HEALTHY SKIN ANTI-WRINKLE CREAM SPF 15 [Suspect]
     Active Substance: ENSULIZOLE\OCTINOXATE
     Indication: DRY SKIN PROPHYLAXIS
     Dosage: DIME SIZE AMOUNT ONCE IN AWHILE.
     Route: 061
  2. NEUTROGENA HEALTHY SKIN FACE BROAD SPECTRUM SPF15 [Suspect]
     Active Substance: AVOBENZONE\OCTISALATE\OCTOCRYLENE\OXYBENZONE
     Indication: DRY SKIN PROPHYLAXIS
     Dosage: DIME SIZE AMOUNT ONCE IN AWHILE.
     Route: 061
  3. NEUTROGENA EXTRA GENTLE CLEANSER [Suspect]
     Active Substance: COSMETICS
     Indication: REMOVAL OF INERT MATTER FROM SKIN OR SUBCUTANEOUS TISSUE
     Dosage: DIME SIZE AMOUNT ONCE IN AWHILE.
     Route: 061
  4. SOTALOL. [Concomitant]
     Active Substance: SOTALOL
     Indication: ATRIAL FIBRILLATION
     Dosage: ONCE DAILY
  5. CRESTOR [Concomitant]
     Active Substance: ROSUVASTATIN CALCIUM
     Indication: HYPERTENSION
     Dosage: EVERY OTHER DAY
  6. METOPROLOL TARTRATE. [Concomitant]
     Active Substance: METOPROLOL TARTRATE
     Indication: BLOOD PRESSURE MEASUREMENT
     Dosage: ONCE DAILY
  7. IRBESARTAN HYDROCHLORIDE [Concomitant]
     Indication: HYPERTENSION
     Dosage: ONCE DAILY
  8. NEUTROGENA OIL FREE MOISTURE BROAD SPECTRUM SPF15 [Suspect]
     Active Substance: AVOBENZONE\OCTISALATE\OCTOCRYLENE\OXYBENZONE
     Indication: DRY SKIN PROPHYLAXIS
     Dosage: DIME SIZE AMOUNT ONCE IN AWHILE.
     Route: 061

REACTIONS (3)
  - Product expiration date issue [Unknown]
  - Skin cancer [Recovered/Resolved]
  - Product lot number issue [Unknown]
